FAERS Safety Report 11509257 (Version 1)
Quarter: 2015Q3

REPORT INFORMATION
  Report Type: Spontaneous
  Country: CH (occurrence: PT)
  Receive Date: 20150915
  Receipt Date: 20150915
  Transmission Date: 20151125
  Serious: Yes (Life-Threatening, Hospitalization)
  Sender: FDA-Public Use
  Company Number: CH-LPDUSPRD-20150694

PATIENT
  Age: 44 Year
  Sex: Female
  Weight: 50 kg

DRUGS (5)
  1. ESCITALOPRAM SANDOZ [Concomitant]
     Dosage: 10 MG DAILY
     Route: 048
     Dates: start: 20150802, end: 20150811
  2. FERINJECT [Suspect]
     Active Substance: FERRIC CARBOXYMALTOSE
     Dosage: 500 MG
     Route: 042
     Dates: start: 20150810, end: 20150810
  3. LOVENOX [Concomitant]
     Active Substance: ENOXAPARIN SODIUM
     Dosage: 40 MG DAILY
     Route: 065
     Dates: start: 20150802, end: 20150811
  4. ALPRAZOLAM, GENERIC [Concomitant]
     Dosage: 0.5 MG DAILY
     Route: 048
     Dates: start: 20150802, end: 20150811
  5. PANTOPRAZOL SANDOZ [Concomitant]
     Dosage: 40 MG DAILY
     Route: 048
     Dates: start: 20150802, end: 20150811

REACTIONS (3)
  - Rash macular [Unknown]
  - Infectious colitis [Unknown]
  - Rash generalised [Unknown]

NARRATIVE: CASE EVENT DATE: 20150810
